FAERS Safety Report 11026213 (Version 1)
Quarter: 2015Q2

REPORT INFORMATION
  Report Type: Spontaneous
  Country: AU (occurrence: AU)
  Receive Date: 20150414
  Receipt Date: 20150414
  Transmission Date: 20150821
  Serious: Yes (Hospitalization, Other)
  Sender: FDA-Public Use
  Company Number: PHHY2015AU029953

PATIENT
  Age: 72 Year
  Sex: Female
  Weight: 86 kg

DRUGS (3)
  1. NEXIAM [Concomitant]
     Active Substance: ESOMEPRAZOLE
     Indication: GASTROOESOPHAGEAL REFLUX DISEASE
     Dosage: 4MG DAILY (YEARS)
     Route: 048
  2. ACLASTA [Suspect]
     Active Substance: ZOLEDRONIC ACID
     Indication: OSTEOPOROTIC FRACTURE
     Dosage: YEARLY
     Route: 042
     Dates: start: 20150302
  3. TAZAC [Concomitant]
     Indication: GASTROOESOPHAGEAL REFLUX DISEASE
     Dosage: 150 MG,NOCTE (1 YEAR)
     Route: 048

REACTIONS (8)
  - Cellulitis [Unknown]
  - Influenza like illness [Recovered/Resolved]
  - Peripheral swelling [Unknown]
  - Arthralgia [Recovering/Resolving]
  - Myalgia [Recovering/Resolving]
  - Synovial cyst [Unknown]
  - Vasodilatation [Unknown]
  - Pain in extremity [Unknown]

NARRATIVE: CASE EVENT DATE: 20150302
